FAERS Safety Report 5325433-0 (Version None)
Quarter: 2007Q2

REPORT INFORMATION
  Report Type: 
  Country: None (occurrence: None)
  Receive Date: 20070515
  Receipt Date: 20070502
  Transmission Date: 20071010
  Serious: Yes (Hospitalization)
  Sender: FDA-Public Use
  Company Number: US-AMGEN-STX220302

PATIENT
  Sex: Female

DRUGS (19)
  1. ENBREL [Suspect]
     Indication: RHEUMATOID ARTHRITIS
     Route: 058
     Dates: start: 20060929, end: 20070123
  2. METHOTREXATE [Suspect]
     Route: 065
  3. PREDNISONE TAB [Suspect]
     Route: 065
  4. KLONOPIN [Concomitant]
     Route: 065
  5. COLESTID [Concomitant]
     Route: 065
  6. DARVOCET-N 100 [Concomitant]
     Route: 065
  7. HYDROCHLOROTHIAZIDE [Concomitant]
     Route: 065
  8. FOLIC ACID [Concomitant]
     Route: 065
  9. GLIPIZIDE [Concomitant]
     Route: 065
  10. NORVASC [Concomitant]
     Route: 065
  11. BENICAR [Concomitant]
     Route: 065
  12. TOPROL-XL [Concomitant]
     Route: 065
  13. POTASSIUM ACETATE [Concomitant]
     Route: 065
  14. REGLAN [Concomitant]
     Route: 065
  15. ZANTAC [Concomitant]
     Route: 065
  16. CALCIUM WITH VITAMIN D [Concomitant]
     Route: 065
  17. VITAMIN D [Concomitant]
     Route: 065
  18. TYLENOL [Concomitant]
     Route: 065
  19. GLYBURIDE [Concomitant]
     Route: 065

REACTIONS (3)
  - ENTEROCUTANEOUS FISTULA [None]
  - POST PROCEDURAL INFECTION [None]
  - SMALL INTESTINAL OBSTRUCTION [None]
